FAERS Safety Report 5541918-6 (Version None)
Quarter: 2007Q4

REPORT INFORMATION
  Report Type: 
  Country: None (occurrence: None)
  Receive Date: 20071205
  Receipt Date: 20040223
  Transmission Date: 20080405
  Serious: Yes (Life-Threatening, Hospitalization)
  Sender: FDA-Public Use
  Company Number: GXKR2004GB01282

PATIENT
  Age: 19 Year
  Sex: Female
  Weight: 76 kg

DRUGS (11)
  1. FLAGYL [Suspect]
  2. THIOPENTAL SODIUM [Suspect]
  3. SUXAMETHONIUM (SUXAMETHONIUM) [Suspect]
  4. FENTANYL [Suspect]
  5. MORPHINE [Suspect]
  6. VERAPAMIL [Suspect]
  7. BUPIVACAINE [Suspect]
     Indication: ANAESTHESIA
  8. CEFUROXIME [Suspect]
  9. EPHEDRINE (NGX) (EPHEDRINE) UNKNOWN [Suspect]
  10. ONDANSETRON [Suspect]
  11. IODINE (IODINE) [Suspect]

REACTIONS (4)
  - BRONCHOSPASM [None]
  - DRUG HYPERSENSITIVITY [None]
  - HYPOTENSION [None]
  - STRIDOR [None]
